FAERS Safety Report 10172936 (Version 1)
Quarter: 2014Q2

REPORT INFORMATION
  Report Type: Spontaneous
  Country: US (occurrence: None)
  Receive Date: 20140514
  Receipt Date: 20140514
  Transmission Date: 20141212
  Serious: Yes (Hospitalization)
  Sender: FDA-Public Use
  Company Number: None

PATIENT
  Age: 22 Year
  Sex: Male
  Weight: 86.18 kg

DRUGS (1)
  1. ADDERAL 10MG [Suspect]
     Indication: ATTENTION DEFICIT/HYPERACTIVITY DISORDER
     Dosage: 1 PILL?THREE TIMES DAILY?TAKEN BY MOUTH
     Route: 048

REACTIONS (1)
  - Atrial fibrillation [None]
